FAERS Safety Report 22597002 (Version 1)
Quarter: 2023Q2

REPORT INFORMATION
  Report Type: Spontaneous
  Country: JP (occurrence: JP)
  Receive Date: 20230613
  Receipt Date: 20230613
  Transmission Date: 20230721
  Serious: Yes (Death, Other)
  Sender: FDA-Public Use
  Company Number: JP-TAKEDA-2023TJP007531

PATIENT
  Age: 9 Decade
  Sex: Male

DRUGS (2)
  1. FEIBA NF [Suspect]
     Active Substance: ANTI-INHIBITOR COAGULANT COMPLEX
     Indication: Haemorrhagic diathesis
     Dosage: 6000 INTERNATIONAL UNIT, TID
     Route: 042
     Dates: start: 20230528, end: 20230531
  2. FEIBA NF [Suspect]
     Active Substance: ANTI-INHIBITOR COAGULANT COMPLEX
     Dosage: 6000 INTERNATIONAL UNIT, BID
     Route: 042
     Dates: start: 20230601, end: 20230608

REACTIONS (1)
  - Death [Fatal]

NARRATIVE: CASE EVENT DATE: 20230608
